FAERS Safety Report 12492470 (Version 1)
Quarter: 2016Q2

REPORT INFORMATION
  Report Type: Not Available
  Country: None (occurrence: US)
  Receive Date: 20160623
  Receipt Date: 20160623
  Transmission Date: 20160815
  Serious: No
  Sender: FDA-Public Use
  Company Number: US-AKORN-31896

PATIENT
  Age: 52 Year
  Sex: Female

DRUGS (1)
  1. BETIMOL [Suspect]
     Active Substance: TIMOLOL

REACTIONS (4)
  - Weight control [Unknown]
  - Mood swings [Unknown]
  - Weight increased [None]
  - Depression [Unknown]
